FAERS Safety Report 20860683 (Version 1)
Quarter: 2022Q2

REPORT INFORMATION
  Report Type: Spontaneous
  Country: CA (occurrence: None)
  Receive Date: 20220523
  Receipt Date: 20220523
  Transmission Date: 20220721
  Serious: Yes (Other)
  Sender: FDA-Public Use
  Company Number: CA-ROCHE-3098464

PATIENT
  Age: 46 Year
  Sex: Male

DRUGS (11)
  1. VAXZEVRIA [Suspect]
     Active Substance: AZD-1222
     Indication: Product used for unknown indication
     Dosage: CONTAINS 10 DOSES OF 0.5ML
     Route: 030
  2. RITUXIMAB [Suspect]
     Active Substance: RITUXIMAB
     Indication: Anti-neutrophil cytoplasmic antibody positive vasculitis
     Route: 041
  3. IRBESARTAN [Concomitant]
     Active Substance: IRBESARTAN
     Route: 048
  4. TOZINAMERAN [Concomitant]
     Active Substance: TOZINAMERAN
  5. RENVELA [Concomitant]
     Active Substance: SEVELAMER CARBONATE
     Route: 048
  6. CALCIUM [Concomitant]
     Active Substance: CALCIUM
  7. TYLENOL [Concomitant]
     Active Substance: ACETAMINOPHEN
     Route: 048
  8. SOLU-MEDROL [Concomitant]
     Active Substance: METHYLPREDNISOLONE SODIUM SUCCINATE
  9. ARANESP [Concomitant]
     Active Substance: DARBEPOETIN ALFA
     Route: 042
  10. PREDNISONE [Concomitant]
     Active Substance: PREDNISONE
  11. BENADRYL [Concomitant]
     Active Substance: DIPHENHYDRAMINE HYDROCHLORIDE
     Route: 048

REACTIONS (1)
  - Intestinal haemorrhage [Unknown]
